FAERS Safety Report 9465922 (Version 3)
Quarter: 2013Q3

REPORT INFORMATION
  Report Type: Spontaneous
  Country: CH (occurrence: CH)
  Receive Date: 20130820
  Receipt Date: 20130924
  Transmission Date: 20140515
  Serious: Yes (Hospitalization, Other)
  Sender: FDA-Public Use
  Company Number: CH-AMGEN-CHESP2013057274

PATIENT
  Age: 42 Year
  Sex: Female

DRUGS (5)
  1. NEUPOGEN [Suspect]
     Indication: PROPHYLAXIS
     Dosage: 30 MILLION UNIT, 2X/WEEK
     Route: 058
     Dates: start: 20130803, end: 20130804
  2. PACLITAXEL [Suspect]
     Indication: BREAST CANCER
     Dosage: UNK UNK, Q2WK
     Route: 042
     Dates: start: 20130729, end: 20130814
  3. DOXORUBICIN [Concomitant]
     Indication: BREAST CANCER
     Dosage: UNK
     Dates: start: 2013
  4. CYCLOPHOSPHAMIDE [Concomitant]
     Indication: BREAST CANCER
     Dosage: UNK
     Dates: start: 2013
  5. GINGER                             /01646602/ [Concomitant]
     Indication: PROPHYLAXIS OF NAUSEA AND VOMITING
     Dosage: UNK

REACTIONS (7)
  - Urticaria [Not Recovered/Not Resolved]
  - Infusion related reaction [Unknown]
  - Dyspnoea [Unknown]
  - Back pain [Unknown]
  - Blood pressure decreased [Unknown]
  - Rash erythematous [Unknown]
  - Psoriasis [Unknown]
